FAERS Safety Report 15855094 (Version 1)
Quarter: 2019Q1

REPORT INFORMATION
  Report Type: Report from Study
  Country: BR (occurrence: BR)
  Receive Date: 20190122
  Receipt Date: 20190122
  Transmission Date: 20190417
  Serious: Yes (Death, Other)
  Sender: FDA-Public Use
  Company Number: BR-UCBSA-2019002514

PATIENT
  Sex: Male
  Weight: 80 kg

DRUGS (1)
  1. LACOSAMIDE. [Suspect]
     Active Substance: LACOSAMIDE
     Indication: SEIZURE
     Dosage: 150 MG, 2X/DAY (BID)
     Dates: start: 201810, end: 201812

REACTIONS (2)
  - Oesophageal carcinoma [Fatal]
  - Device related infection [Unknown]

NARRATIVE: CASE EVENT DATE: 2018
